FAERS Safety Report 10023718 (Version 1)
Quarter: 2014Q1

REPORT INFORMATION
  Report Type: Spontaneous
  Country: DK (occurrence: None)
  Receive Date: 20140110
  Receipt Date: 20140110
  Transmission Date: 20141002
  Serious: Yes (Disabling)
  Sender: FDA-Public Use
  Company Number: DK 2009 0018

PATIENT
  Age: 66 Year
  Sex: Male

DRUGS (14)
  1. GADOLINIUM [Suspect]
     Indication: ANGIOGRAM
     Route: 042
     Dates: start: 20050107, end: 20050107
  2. ATACAND [Concomitant]
  3. EPREX [Concomitant]
  4. IMODIUM [Concomitant]
  5. MANDOLGIN [Concomitant]
  6. NEXIUM [Concomitant]
  7. NORVASC [Concomitant]
  8. PANODIL [Concomitant]
  9. PHOS-EX [Concomitant]
  10. RENAGEL [Concomitant]
  11. RESONIUM [Concomitant]
  12. VENOFER [Concomitant]
  13. VIBEDEN [Concomitant]
  14. ZYRTEC [Concomitant]

REACTIONS (4)
  - Nephrogenic systemic fibrosis [None]
  - Pulmonary hypertension [None]
  - Respiratory failure [None]
  - Haemodialysis [None]
